FAERS Safety Report 20606059 (Version 1)
Quarter: 2022Q1

REPORT INFORMATION
  Report Type: Spontaneous
  Country: AL (occurrence: AL)
  Receive Date: 20220317
  Receipt Date: 20220317
  Transmission Date: 20220423
  Serious: Yes (Other)
  Sender: FDA-Public Use
  Company Number: AL-STRIDES ARCOLAB LIMITED-2022SP002753

PATIENT
  Age: 14 Year
  Sex: Female

DRUGS (7)
  1. TACROLIMUS [Interacting]
     Active Substance: TACROLIMUS
     Indication: Liver transplant
     Dosage: 3 MILLIGRAM, PER DAY
     Route: 065
  2. TACROLIMUS [Interacting]
     Active Substance: TACROLIMUS
     Dosage: UNK (DOSE ADJUSTED)
     Route: 065
  3. ELEXACAFTOR\IVACAFTOR\TEZACAFTOR [Interacting]
     Active Substance: ELEXACAFTOR\IVACAFTOR\TEZACAFTOR
     Indication: Pulmonary function test decreased
     Dosage: 1 DOSAGE FORM, EVERY MORNING
     Route: 065
  4. ELEXACAFTOR\IVACAFTOR\TEZACAFTOR [Interacting]
     Active Substance: ELEXACAFTOR\IVACAFTOR\TEZACAFTOR
     Indication: Infective pulmonary exacerbation of cystic fibrosis
  5. IVACAFTOR [Interacting]
     Active Substance: IVACAFTOR
     Indication: Pulmonary function test decreased
     Dosage: 150 MILLIGRAM, IN THE EVENING
     Route: 065
  6. IVACAFTOR [Interacting]
     Active Substance: IVACAFTOR
     Indication: Infective pulmonary exacerbation of cystic fibrosis
  7. MYCOPHENOLIC ACID [Concomitant]
     Active Substance: MYCOPHENOLIC ACID
     Indication: Liver transplant
     Dosage: UNK
     Route: 065

REACTIONS (2)
  - Drug interaction [Unknown]
  - Drug level increased [Recovered/Resolved]
